FAERS Safety Report 7767268-5 (Version None)
Quarter: 2011Q3

REPORT INFORMATION
  Report Type: 
  Country: None (occurrence: None)
  Receive Date: 20110922
  Receipt Date: 20110114
  Transmission Date: 20111222
  Serious: No
  Sender: FDA-Public Use
  Company Number: US-ASTRAZENECA-2011SE03158

PATIENT
  Sex: Male

DRUGS (3)
  1. SEROQUEL [Suspect]
     Dosage: EVERY NIGHT BEFORE BED
     Route: 048
  2. SEROQUEL [Suspect]
     Route: 048
  3. LITHIUM CARBONATE [Concomitant]

REACTIONS (3)
  - INSOMNIA [None]
  - THERAPEUTIC RESPONSE UNEXPECTED [None]
  - DRUG EFFECT DECREASED [None]
